FAERS Safety Report 24986327 (Version 1)
Quarter: 2025Q1

REPORT INFORMATION
  Report Type: Spontaneous
  Country: US (occurrence: US)
  Receive Date: 20250219
  Receipt Date: 20250219
  Transmission Date: 20250409
  Serious: No
  Sender: MYLAN
  Company Number: US-MYLANLABS-2025M1010801

PATIENT
  Age: 70 Year
  Sex: Male
  Weight: 72.57 kg

DRUGS (1)
  1. FENTANYL TRANSDERMAL SYSTEM [Suspect]
     Active Substance: FENTANYL
     Indication: Product used for unknown indication
     Dosage: 75 MICROGRAM, QH (PER HOUR, EVERY 48 HOURS)
     Route: 062

REACTIONS (5)
  - Dyskinesia [Unknown]
  - Tremor [Unknown]
  - Muscle twitching [Unknown]
  - Withdrawal syndrome [Unknown]
  - Therapeutic product effect decreased [Unknown]

NARRATIVE: CASE EVENT DATE: 20250119
